FAERS Safety Report 11197251 (Version 1)
Quarter: 2015Q2

REPORT INFORMATION
  Report Type: Spontaneous
  Country: US (occurrence: US)
  Receive Date: 20150617
  Receipt Date: 20150617
  Transmission Date: 20150821
  Serious: No
  Sender: FDA-Public Use
  Company Number: US-SA-2015SA033289

PATIENT
  Age: 51 Year
  Sex: Male
  Weight: 86.2 kg

DRUGS (1)
  1. CEREZYME [Suspect]
     Active Substance: IMIGLUCERASE
     Indication: LIPIDOSIS
     Dosage: DOSE:60.3 UNIT(S)/KILOGRAM BODYWEIGHT
     Route: 042
     Dates: start: 20110510

REACTIONS (1)
  - Drug dose omission [Unknown]
